FAERS Safety Report 23394964 (Version 5)
Quarter: 2024Q3

REPORT INFORMATION
  Report Type: Spontaneous
  Country: US (occurrence: US)
  Receive Date: 20240112
  Receipt Date: 20240729
  Transmission Date: 20241017
  Serious: Yes (Hospitalization, Other)
  Sender: BRISTOL MYERS SQUIBB
  Company Number: US-BRISTOL-MYERS SQUIBB COMPANY-2024-005957

PATIENT
  Age: 67 Year
  Sex: Female

DRUGS (2)
  1. THALOMID [Suspect]
     Active Substance: THALIDOMIDE
     Indication: Behcet^s syndrome
     Dosage: TAKE EVERY DAY 1 HOUR AFTER EVENING MEAL
     Route: 048
  2. THALOMID [Suspect]
     Active Substance: THALIDOMIDE
     Dosage: TAKE 1 CAPSULE BY MOUTH EVERY DAY 1 HOUR AFTER EVENING
     Route: 048

REACTIONS (7)
  - Hypertension [Recovered/Resolved]
  - Off label use [Unknown]
  - Headache [Recovering/Resolving]
  - Muscle spasms [Recovered/Resolved]
  - Musculoskeletal stiffness [Recovered/Resolved]
  - Muscle rigidity [Recovered/Resolved]
  - Ocular discomfort [Recovering/Resolving]
